FAERS Safety Report 4840295-3 (Version None)
Quarter: 2005Q4

REPORT INFORMATION
  Report Type: 
  Country: None (occurrence: None)
  Receive Date: 20051020
  Receipt Date: 20050708
  Transmission Date: 20060501
  Serious: No
  Sender: FDA-Public Use
  Company Number: 2005BH000659

PATIENT
  Age: 75 Year
  Sex: Male

DRUGS (1)
  1. EXTRANEAL [Suspect]
     Indication: DRUG USE FOR UNKNOWN INDICATION
     Dosage: 2000 ML; EVERY DAY; IP
     Route: 033
     Dates: start: 20050630, end: 20050707

REACTIONS (2)
  - ERUCTATION [None]
  - GASTRITIS [None]
